FAERS Safety Report 9598174 (Version 1)
Quarter: 2013Q4

REPORT INFORMATION
  Report Type: Spontaneous
  Country: US (occurrence: US)
  Receive Date: 20131004
  Receipt Date: 20131004
  Transmission Date: 20140711
  Serious: No
  Sender: FDA-Public Use
  Company Number: US-AMGEN-USASP2013022859

PATIENT
  Age: 48 Year
  Sex: Female

DRUGS (1)
  1. ENBREL [Suspect]
     Indication: PRODUCT USED FOR UNKNOWN INDICATION
     Dosage: 50 MG (2 VIALS OF 25 MG) WEEKLY
     Route: 058
     Dates: start: 201301

REACTIONS (3)
  - Rash generalised [Unknown]
  - Wheezing [Unknown]
  - Injection site urticaria [Unknown]
